FAERS Safety Report 4532100-X (Version None)
Quarter: 2004Q4

REPORT INFORMATION
  Report Type: 
  Country: None (occurrence: None)
  Receive Date: 20041220
  Receipt Date: 20041208
  Transmission Date: 20050328
  Serious: Yes (Death)
  Sender: FDA-Public Use
  Company Number: JP-JNJFOC-20041203580

PATIENT
  Age: 32 Year
  Sex: Male

DRUGS (6)
  1. CLADRIBINE [Suspect]
     Indication: MYCOSIS FUNGOIDES
     Route: 050
  2. CLADRIBINE [Suspect]
     Indication: B-CELL LYMPHOMA
     Dosage: 7 CONSECUTIVE DAYS, EVERY 4 WEEKS, UP TO A MAXIMUM OF 6 CYCLES
     Route: 050
  3. CYCLOPHOSPHAMIDE [Concomitant]
     Dosage: CHOP THERAPY REGIMEN
  4. DOXORUBICIN HYDROCHLORIDE [Concomitant]
     Dosage: CHOP THERAPY REGIMEN
  5. VINCRISTINE [Concomitant]
     Dosage: CHOP THERAPY REGIMEN
  6. PREDNISONE TAB [Concomitant]
     Dosage: CHOP THERAPY REGIMEN

REACTIONS (4)
  - FOLLICLE CENTRE LYMPHOMA, FOLLICULAR GRADE I, II, III REFRACTORY [None]
  - GASTROINTESTINAL HAEMORRHAGE [None]
  - HERPES SIMPLEX [None]
  - MALIGNANT NEOPLASM PROGRESSION [None]
